FAERS Safety Report 23737601 (Version 1)
Quarter: 2024Q2

REPORT INFORMATION
  Report Type: Spontaneous
  Country: US (occurrence: None)
  Receive Date: 20240412
  Receipt Date: 20240412
  Transmission Date: 20240716
  Serious: No
  Sender: FDA-Public Use
  Company Number: None

PATIENT
  Age: 74 Year
  Sex: Male

DRUGS (9)
  1. SIROLIMUS [Suspect]
     Active Substance: SIROLIMUS
     Indication: Immunodeficiency
     Dosage: FREQUENCY : DAILY;?
     Route: 048
     Dates: start: 20150722
  2. ATORVASTATIN [Concomitant]
  3. FUROSEMIDE [Concomitant]
  4. HYDRALAZINE [Concomitant]
  5. MAGNESIUM [Concomitant]
  6. METOLAZONE [Concomitant]
  7. METOLAZONE [Concomitant]
  8. MULTIVITAMIN [Concomitant]
  9. TAMSULOSIN [Concomitant]

REACTIONS (1)
  - Lymphoma [None]

NARRATIVE: CASE EVENT DATE: 20240408
